FAERS Safety Report 20107348 (Version 2)
Quarter: 2021Q4

REPORT INFORMATION
  Report Type: Spontaneous
  Country: FR (occurrence: FR)
  Receive Date: 20211124
  Receipt Date: 20211230
  Transmission Date: 20220303
  Serious: Yes (Hospitalization, Other)
  Sender: FDA-Public Use
  Company Number: FR-NOVARTISPH-NVSC2021FR262685

PATIENT
  Age: 39 Year
  Sex: Female
  Weight: 84 kg

DRUGS (2)
  1. ZIEXTENZO [Suspect]
     Active Substance: PEGFILGRASTIM-BMEZ
     Indication: Prophylaxis
     Dosage: 6 MG
     Route: 058
     Dates: start: 20210910, end: 20210910
  2. FLUOROURACIL\IRINOTECAN\LEUCOVORIN\OXALIPLATIN [Concomitant]
     Active Substance: FLUOROURACIL\IRINOTECAN\LEUCOVORIN\OXALIPLATIN
     Indication: Rectal adenocarcinoma
     Dosage: UNK
     Route: 065

REACTIONS (6)
  - Rash pruritic [Recovered/Resolved]
  - Respiratory disorder [Recovered/Resolved]
  - Thermal burn [Recovered/Resolved]
  - Erythema [Recovered/Resolved]
  - Diarrhoea [Recovered/Resolved]
  - Dyspnoea exertional [Recovered/Resolved]

NARRATIVE: CASE EVENT DATE: 20210910
